FAERS Safety Report 5447653-7 (Version None)
Quarter: 2007Q3

REPORT INFORMATION
  Report Type: 
  Country: None (occurrence: None)
  Receive Date: 20070910
  Receipt Date: 20070831
  Transmission Date: 20080115
  Serious: Yes (Other)
  Sender: FDA-Public Use
  Company Number: PHFR2007IE02611

PATIENT
  Age: 39 Year
  Sex: Male

DRUGS (3)
  1. CLOZARIL [Suspect]
     Indication: SCHIZOPHRENIA
     Route: 048
     Dates: start: 20051125
  2. CLOMIPRAMINE HCL [Concomitant]
  3. LITHIUM CARBONATE [Concomitant]

REACTIONS (5)
  - ELECTROCARDIOGRAM QT PROLONGED [None]
  - OVERWEIGHT [None]
  - QRS AXIS ABNORMAL [None]
  - SLEEP APNOEA SYNDROME [None]
  - TACHYCARDIA [None]
